FAERS Safety Report 23763039 (Version 1)
Quarter: 2024Q2

REPORT INFORMATION
  Report Type: Spontaneous
  Country: US (occurrence: None)
  Receive Date: 20240419
  Receipt Date: 20240419
  Transmission Date: 20240716
  Serious: Yes (Disabling, Other)
  Sender: FDA-Public Use
  Company Number: None

PATIENT
  Age: 42 Year
  Sex: Female
  Weight: 85.95 kg

DRUGS (5)
  1. VRAYLAR [Suspect]
     Active Substance: CARIPRAZINE
     Indication: Schizophrenia
     Dosage: OTHER QUANTITY : 1 CAPSULE(S);?FREQUENCY : AT BEDTIME;?
     Route: 048
     Dates: start: 20240301, end: 20240418
  2. Prolixin 5 MG [Concomitant]
  3. Omega 3 [Concomitant]
  4. KRILL OIL [Concomitant]
  5. vitamin gels [Concomitant]

REACTIONS (11)
  - Malaise [None]
  - Thirst [None]
  - Intentional dose omission [None]
  - Feeling abnormal [None]
  - Psychotic disorder [None]
  - Fear [None]
  - Hyperhidrosis [None]
  - Thinking abnormal [None]
  - Uterine inflammation [None]
  - Nervousness [None]
  - Muscle twitching [None]

NARRATIVE: CASE EVENT DATE: 20240413
